FAERS Safety Report 12752307 (Version 3)
Quarter: 2021Q1

REPORT INFORMATION
  Report Type: Report from Study
  Country: BR (occurrence: BR)
  Receive Date: 20160915
  Receipt Date: 20210312
  Transmission Date: 20210419
  Serious: Yes (Other)
  Sender: FDA-Public Use
  Company Number: BR-BIOGEN-2016BI00291240

PATIENT
  Sex: Female

DRUGS (4)
  1. ACETAMINOPHEN. [Concomitant]
     Active Substance: ACETAMINOPHEN
     Indication: FATIGUE
     Dosage: 1 HOUR PRIOR TO AVONEX INJECTION
     Route: 065
  2. AVONEX [Suspect]
     Active Substance: INTERFERON BETA-1A
     Indication: MULTIPLE SCLEROSIS
     Route: 065
  3. AVONEX PEN [Suspect]
     Active Substance: INTERFERON BETA-1A
     Indication: MULTIPLE SCLEROSIS
     Route: 030
     Dates: start: 2008, end: 2012
  4. TECFIDERA [Suspect]
     Active Substance: DIMETHYL FUMARATE
     Indication: MULTIPLE SCLEROSIS
     Route: 065
     Dates: start: 201608

REACTIONS (7)
  - Deafness unilateral [Not Recovered/Not Resolved]
  - Muscle fatigue [Recovered/Resolved]
  - Hypoacusis [Not Recovered/Not Resolved]
  - Pain [Recovered/Resolved]
  - Multiple sclerosis relapse [Recovered/Resolved]
  - Nephrolithiasis [Unknown]
  - Memory impairment [Unknown]
